FAERS Safety Report 8443850-7 (Version None)
Quarter: 2012Q2

REPORT INFORMATION
  Report Type: 
  Country: None (occurrence: None)
  Receive Date: 20120618
  Receipt Date: 20120608
  Transmission Date: 20120825
  Serious: Yes (Other)
  Sender: FDA-Public Use
  Company Number: US-US-EMD SERONO, INC.-7139158

PATIENT
  Sex: Male

DRUGS (2)
  1. REBIF [Suspect]
     Indication: PRODUCT USED FOR UNKNOWN INDICATION
     Route: 058
     Dates: start: 20090909
  2. IBUPROFEN (ADVIL) [Concomitant]
     Indication: PREMEDICATION

REACTIONS (9)
  - NAUSEA [None]
  - INJECTION SITE DISCOMFORT [None]
  - INJECTION SITE HAEMORRHAGE [None]
  - ACCIDENT [None]
  - INJECTION SITE PAIN [None]
  - INJECTION SITE ERYTHEMA [None]
  - HYPOAESTHESIA [None]
  - LIGAMENT OPERATION [None]
  - MUSCULAR WEAKNESS [None]
